FAERS Safety Report 13630873 (Version 1)
Quarter: 2017Q2

REPORT INFORMATION
  Report Type: Spontaneous
  Country: US (occurrence: US)
  Receive Date: 20170531
  Receipt Date: 20170531
  Transmission Date: 20170830
  Serious: No
  Sender: FDA-Public Use
  Company Number: US-ASTELLAS-1335685

PATIENT
  Sex: Female

DRUGS (4)
  1. TARCEVA [Suspect]
     Active Substance: ERLOTINIB HYDROCHLORIDE
     Indication: LUNG NEOPLASM MALIGNANT
     Dosage: DAILY
     Route: 048
     Dates: start: 20131111
  2. LOSARTAN POTASSIUM. [Concomitant]
     Active Substance: LOSARTAN POTASSIUM
  3. LEVEMIR [Concomitant]
     Active Substance: INSULIN DETEMIR
  4. EMEND [Concomitant]
     Active Substance: APREPITANT

REACTIONS (3)
  - Skin haemorrhage [Unknown]
  - Haemorrhage [Unknown]
  - Stomatitis [Unknown]
